FAERS Safety Report 8005778-6 (Version None)
Quarter: 2011Q4

REPORT INFORMATION
  Report Type: 
  Country: None (occurrence: None)
  Receive Date: 20111223
  Receipt Date: 20111216
  Transmission Date: 20120403
  Serious: Yes (Death, Hospitalization, Other)
  Sender: FDA-Public Use
  Company Number: US-CELGENEUS-163-21880-11121223

PATIENT
  Sex: Female
  Weight: 104.42 kg

DRUGS (14)
  1. COREG [Concomitant]
     Dosage: 25 MILLIGRAM
     Route: 048
     Dates: start: 20060101
  2. PROCARDIA XL [Concomitant]
     Dosage: 90 MILLIGRAM
     Route: 048
     Dates: start: 20050101
  3. HYDRALAZINE HCL [Concomitant]
     Dosage: 10 MILLIGRAM
     Route: 048
     Dates: start: 20060101
  4. ALLOPURINOL [Concomitant]
     Route: 048
  5. REVLIMID [Suspect]
     Indication: MULTIPLE MYELOMA
     Dosage: 25 MILLIGRAM
     Route: 048
     Dates: start: 20111115
  6. POTASSIUM [Concomitant]
     Dosage: 10 MILLIEQUIVALENTS
     Route: 048
     Dates: start: 20050101
  7. REVLIMID [Suspect]
     Dosage: 10 MILLIGRAM
     Route: 048
     Dates: start: 20111201
  8. GLIPIZIDE [Concomitant]
     Dosage: 10 MILLIGRAM
     Route: 048
     Dates: start: 20060101
  9. ALTACE [Concomitant]
     Dosage: 10 MILLIGRAM
     Route: 048
     Dates: start: 20060101
  10. WARFARIN [Concomitant]
     Dosage: 5 MILLIGRAM
     Route: 048
     Dates: start: 20050101
  11. COMPAZINE [Concomitant]
     Dosage: 10 MILLIGRAM
     Route: 048
     Dates: start: 20111101
  12. ASPIRIN [Concomitant]
     Dosage: 81 MILLIGRAM
     Route: 048
     Dates: start: 20110101
  13. LEVOTHROID [Concomitant]
     Dosage: .1 MILLIGRAM
     Route: 048
     Dates: start: 20111101
  14. LASIX [Concomitant]
     Dosage: 40 MILLIGRAM
     Route: 048
     Dates: start: 20060101

REACTIONS (3)
  - TOXICITY TO VARIOUS AGENTS [None]
  - THROMBOCYTOPENIA [None]
  - DEATH [None]
